FAERS Safety Report 17702445 (Version 2)
Quarter: 2020Q2

REPORT INFORMATION
  Report Type: Spontaneous
  Country: DE (occurrence: DE)
  Receive Date: 20200423
  Receipt Date: 20200526
  Transmission Date: 20200714
  Serious: Yes (Other)
  Sender: FDA-Public Use
  Company Number: NVSC2020DE107737

PATIENT
  Sex: Female
  Weight: 99 kg

DRUGS (1)
  1. VALSARTAN. [Suspect]
     Active Substance: VALSARTAN
     Indication: PRODUCT USED FOR UNKNOWN INDICATION
     Dosage: 160 MG, QD (80 MILLIGRAM, BID (2 X DAILY)(ONCE IN MORNING AND ONCE IN EVENING))
     Route: 065
     Dates: start: 2019

REACTIONS (4)
  - Quality of life decreased [Unknown]
  - Fear of disease [Unknown]
  - Mental impairment [Unknown]
  - Recalled product administered [Unknown]
